FAERS Safety Report 25867503 (Version 1)
Quarter: 2025Q4

REPORT INFORMATION
  Report Type: Spontaneous
  Country: US (occurrence: US)
  Receive Date: 20251001
  Receipt Date: 20251001
  Transmission Date: 20260118
  Serious: No
  Sender: BAUSCH AND LOMB
  Company Number: US-BAUSCHBL-2025BNL014079

PATIENT
  Age: 88 Year
  Sex: Female

DRUGS (3)
  1. LATANOPROST [Suspect]
     Active Substance: LATANOPROST
     Indication: Product used for unknown indication
  2. LATANOPROST [Suspect]
     Active Substance: LATANOPROST
  3. MINERALS\VITAMINS [Suspect]
     Active Substance: MINERALS\VITAMINS
     Indication: Macular degeneration

REACTIONS (5)
  - Rash macular [Recovered/Resolved]
  - Product closure removal difficult [Unknown]
  - Product container issue [Unknown]
  - Product design issue [Unknown]
  - Product dose omission in error [Unknown]
